FAERS Safety Report 15344196 (Version 1)
Quarter: 2018Q3

REPORT INFORMATION
  Report Type: Report from Study
  Country: US (occurrence: US)
  Receive Date: 20180903
  Receipt Date: 20180903
  Transmission Date: 20181010
  Serious: Yes (Other)
  Sender: FDA-Public Use
  Company Number: US-ASTELLAS-2018US038353

PATIENT
  Sex: Male

DRUGS (1)
  1. REGADENOSON [Suspect]
     Active Substance: REGADENOSON
     Indication: PRODUCT USED FOR UNKNOWN INDICATION
     Dosage: 0.4 MILLIGRAMS PER 5 MILLILITERS INJECTION, UNKNOWN FREQ.
     Route: 042
     Dates: start: 20180409, end: 20180409

REACTIONS (4)
  - Nephrolithiasis [Unknown]
  - Intervertebral disc disorder [Unknown]
  - Loss of personal independence in daily activities [Unknown]
  - Somnolence [Unknown]
